FAERS Safety Report 8173333-3 (Version None)
Quarter: 2012Q1

REPORT INFORMATION
  Report Type: 
  Country: None (occurrence: None)
  Receive Date: 20120104
  Receipt Date: 20110926
  Transmission Date: 20120608
  Serious: No
  Sender: FDA-Public Use
  Company Number: 2011HGS-002583

PATIENT
  Age: 44 Year
  Sex: Female
  Weight: 92.9874 kg

DRUGS (11)
  1. BENLYSTA [Suspect]
     Indication: SYSTEMIC LUPUS ERYTHEMATOSUS
     Dosage: 1 IN 28 D, INTRAVENOUS DRIP
     Route: 041
     Dates: start: 20110826
  2. FENTANYL [Concomitant]
  3. MORPHINE [Concomitant]
  4. METHOTREXATE [Concomitant]
  5. WELLBUTRIN (BUPROPION HYDROCHLORIDE) (BUPROPION HYDROCHLORIDE) [Concomitant]
  6. VITAMIN D (ERGOCALCIFEROL) (ERGOCALCIFEROL) [Concomitant]
  7. PLAQUENIL (HYDROCXYCHLOROQUINE SULFATE) (HYDROXYCHLOROQUINE SULFATE) [Concomitant]
  8. ATENOLOL [Concomitant]
  9. COUMADIN [Concomitant]
  10. PHENERGAN (PROMETHAZINE HYDROCHLORIDE) (PROMETHAZINE HYDROCHLORIDE) [Concomitant]
  11. MVI (MVI) (VITAMINS NOS) [Concomitant]

REACTIONS (3)
  - BLOOD PRESSURE INCREASED [None]
  - PHARYNGEAL OEDEMA [None]
  - NAUSEA [None]
